FAERS Safety Report 8443501-1 (Version None)
Quarter: 2012Q2

REPORT INFORMATION
  Report Type: 
  Country: None (occurrence: None)
  Receive Date: 20120618
  Receipt Date: 20120607
  Transmission Date: 20120825
  Serious: Yes (Other)
  Sender: FDA-Public Use
  Company Number: SE-JNJFOC-20120604760

PATIENT
  Age: 33 Year
  Sex: Female

DRUGS (6)
  1. OMEPRAZOLE [Concomitant]
     Route: 065
  2. AZATHIOPRINE [Concomitant]
     Route: 065
  3. IBUMENTIN [Concomitant]
     Route: 065
  4. REMICADE [Suspect]
     Indication: SARCOIDOSIS
     Route: 042
     Dates: start: 20110511
  5. KALCIPOS D [Concomitant]
     Route: 048
  6. PREDNISOLONE [Concomitant]
     Route: 065

REACTIONS (1)
  - RESPIRATORY FAILURE [None]
